FAERS Safety Report 4561641-4 (Version None)
Quarter: 2005Q1

REPORT INFORMATION
  Report Type: 
  Country: None (occurrence: None)
  Receive Date: 20050126
  Receipt Date: 20050114
  Transmission Date: 20050727
  Serious: Yes (Other)
  Sender: FDA-Public Use
  Company Number: AU-GLAXOSMITHKLINE-B0365298A

PATIENT
  Age: 27 Year
  Sex: Female

DRUGS (4)
  1. LAMICTAL [Suspect]
     Indication: ILL-DEFINED DISORDER
     Route: 065
  2. TYLENOL [Suspect]
     Indication: PAIN IN EXTREMITY
     Dosage: 4G PER DAY
     Route: 065
  3. OXYCODONE HCL [Suspect]
     Indication: PAIN IN EXTREMITY
     Dosage: 5MG TWICE PER DAY
     Route: 065
     Dates: start: 20050101
  4. VALIUM [Concomitant]
     Indication: ILL-DEFINED DISORDER
     Dosage: 10MG UNKNOWN
     Route: 030

REACTIONS (4)
  - APHASIA [None]
  - DRUG INTERACTION [None]
  - GRAND MAL CONVULSION [None]
  - HYPOTONIA [None]
